FAERS Safety Report 21590448 (Version 1)
Quarter: 2022Q4

REPORT INFORMATION
  Report Type: Spontaneous
  Country: DE (occurrence: DE)
  Receive Date: 20221114
  Receipt Date: 20221114
  Transmission Date: 20230113
  Serious: Yes (Hospitalization)
  Sender: FDA-Public Use
  Company Number: DE-ADRED-08059-01

PATIENT
  Age: 82 Year
  Sex: Male

DRUGS (12)
  1. BACLOFEN [Interacting]
     Active Substance: BACLOFEN
     Indication: Product used for unknown indication
     Dosage: 10 MG, 0.5-0-0-0
     Route: 048
  2. BENSERAZIDE\LEVODOPA [Interacting]
     Active Substance: BENSERAZIDE\LEVODOPA
     Indication: Product used for unknown indication
     Dosage: 25|100 MG, 2.5-2.5-2-2
     Route: 048
  3. BENSERAZIDE\LEVODOPA [Interacting]
     Active Substance: BENSERAZIDE\LEVODOPA
     Dosage: 25|100 MG, 1-0-0-0
     Route: 048
  4. BENSERAZIDE\LEVODOPA [Interacting]
     Active Substance: BENSERAZIDE\LEVODOPA
     Dosage: 25|100 MG, 0-0-0-1, SUSTAINED RELEASE CAPSUL
     Route: 048
  5. ONGENTYS [Suspect]
     Active Substance: OPICAPONE
     Indication: Product used for unknown indication
     Dosage: 50 MG, 0-0-0-1
     Route: 048
  6. INDAPAMIDE [Concomitant]
     Active Substance: INDAPAMIDE
     Dosage: 2.5 MG, 1-0-0-0
     Route: 048
  7. CHOLECALCIFEROL [Concomitant]
     Active Substance: CHOLECALCIFEROL
     Dosage: 1000 IU, 1-0-0-0
     Route: 048
  8. TAMSULOSIN [Concomitant]
     Active Substance: TAMSULOSIN
     Dosage: 0.4 MG, 1-0-0-0
     Route: 048
  9. METAMIZOL [Concomitant]
     Active Substance: METAMIZOLE SODIUM
     Dosage: 30 GTT, 1-1-1-1, DROPS
     Route: 048
  10. Kalinor [Concomitant]
     Dosage: 2.057|2|2.17 G, 0-0-1-0, EFFERVESCENT TABLETS
     Route: 048
  11. MACROGOL P [Concomitant]
     Dosage: 1-0-0-0, GRANULAT
     Route: 048
  12. AMANTADINE [Concomitant]
     Active Substance: AMANTADINE
     Dosage: 100 MG, 1-0-0-0
     Route: 048

REACTIONS (3)
  - Dysphagia [Unknown]
  - Vomiting [Unknown]
  - Labelled drug-drug interaction medication error [Unknown]
